FAERS Safety Report 25547258 (Version 4)
Quarter: 2025Q4

REPORT INFORMATION
  Report Type: Spontaneous
  Country: GB (occurrence: GB)
  Receive Date: 20250714
  Receipt Date: 20251001
  Transmission Date: 20260117
  Serious: Yes (Other)
  Sender: BEIGENE
  Company Number: GB-BEIGENE-BGN-2025-011127

PATIENT
  Age: 79 Year

DRUGS (7)
  1. BRUKINSA [Suspect]
     Active Substance: ZANUBRUTINIB
     Indication: Chronic lymphocytic leukaemia
     Dosage: 160 MILLIGRAM, BID
  2. BRUKINSA [Suspect]
     Active Substance: ZANUBRUTINIB
     Dosage: 80 MILLIGRAM, QD FOR 3 DAYS
  3. BRUKINSA [Suspect]
     Active Substance: ZANUBRUTINIB
     Dosage: 80 MILLIGRAM, BID FOR 3 DAYS, INCREASING BY 80MG EVERY 3 DAYS
  4. LORATADINE [Concomitant]
     Active Substance: LORATADINE
     Indication: Seasonal allergy
     Dosage: 10 MILLIGRAM, QD
  5. ACYCLOVIR [Concomitant]
     Active Substance: ACYCLOVIR
     Indication: Chronic lymphocytic leukaemia
     Dosage: UNK
  6. ACYCLOVIR [Concomitant]
     Active Substance: ACYCLOVIR
     Indication: Prophylaxis
  7. COTRIMOXAZOLE [Concomitant]
     Active Substance: SULFAMETHOXAZOLE\TRIMETHOPRIM
     Indication: Chronic lymphocytic leukaemia
     Dosage: UNK

REACTIONS (11)
  - Cutaneous vasculitis [Recovered/Resolved]
  - Vasculitic rash [Recovered/Resolved]
  - Rash macular [Recovered/Resolved]
  - Contusion [Recovering/Resolving]
  - Arthralgia [Recovered/Resolved]
  - Proteinuria [Unknown]
  - Red blood cells urine positive [Unknown]
  - Peripheral swelling [Recovering/Resolving]
  - Tenderness [Recovering/Resolving]
  - Haematoma [Recovering/Resolving]
  - Oral blood blister [Unknown]
